FAERS Safety Report 7069423-9 (Version None)
Quarter: 2010Q4

REPORT INFORMATION
  Report Type: 
  Country: None (occurrence: None)
  Receive Date: 20101028
  Receipt Date: 20101018
  Transmission Date: 20110411
  Serious: Yes (Hospitalization, Other)
  Sender: FDA-Public Use
  Company Number: US-MERCK-1004USA00282

PATIENT
  Age: 62 Year
  Sex: Female
  Weight: 65 kg

DRUGS (5)
  1. FOSAMAX [Suspect]
     Indication: OSTEOPOROSIS PROPHYLAXIS
     Route: 048
     Dates: start: 20010525, end: 20060609
  2. FOSAMAX [Suspect]
     Route: 048
     Dates: start: 20000601, end: 20010101
  3. FOSAMAX [Suspect]
     Route: 048
     Dates: start: 20070201, end: 20071101
  4. PREMPRO [Concomitant]
     Route: 065
     Dates: start: 19950101, end: 20050101
  5. PREMPRO [Concomitant]
     Route: 065
     Dates: start: 20050901, end: 20060101

REACTIONS (31)
  - ANAEMIA POSTOPERATIVE [None]
  - ANAL FISSURE [None]
  - ATROPHIC VULVOVAGINITIS [None]
  - BLOOD CALCIUM DECREASED [None]
  - BONE DISORDER [None]
  - BUNDLE BRANCH BLOCK RIGHT [None]
  - CONSTIPATION [None]
  - DEPRESSION [None]
  - FALL [None]
  - FEMUR FRACTURE [None]
  - GAIT DISTURBANCE [None]
  - HOT FLUSH [None]
  - HYPERLIPIDAEMIA [None]
  - IMPAIRED HEALING [None]
  - INTERVERTEBRAL DISC DEGENERATION [None]
  - LOW TURNOVER OSTEOPATHY [None]
  - MUSCULOSKELETAL DISORDER [None]
  - OSTEOARTHRITIS [None]
  - OSTEOCHONDROSIS [None]
  - OSTEOPENIA [None]
  - OSTEOPOROSIS [None]
  - PLEURAL EFFUSION [None]
  - PULMONARY CONGESTION [None]
  - RENAL CELL CARCINOMA [None]
  - RIB FRACTURE [None]
  - SINUS BRADYCARDIA [None]
  - SMEAR CERVIX ABNORMAL [None]
  - TENDON RUPTURE [None]
  - TOOTH DISORDER [None]
  - TRAUMATIC FRACTURE [None]
  - TUMOUR INVASION [None]
